FAERS Safety Report 9671490 (Version 1)
Quarter: 2013Q4

REPORT INFORMATION
  Report Type: Spontaneous
  Country: GB (occurrence: GB)
  Receive Date: 20131106
  Receipt Date: 20131106
  Transmission Date: 20140711
  Serious: Yes (Other)
  Sender: FDA-Public Use
  Company Number: GB-PFIZER INC-2013314078

PATIENT
  Age: 39 Year
  Sex: Male
  Weight: 80 kg

DRUGS (6)
  1. NICOTINE [Suspect]
     Indication: NICOTINE DEPENDENCE
     Dosage: 10 MG, UNK
     Route: 055
     Dates: start: 201106, end: 201106
  2. NICOTINE [Suspect]
     Indication: NICOTINE DEPENDENCE
     Dosage: 21MG, UNK
     Route: 062
     Dates: start: 201106, end: 201106
  3. CARBAMAZEPINE [Concomitant]
     Indication: MOOD SWINGS
     Dosage: 200 MG, 4X/DAY
     Route: 048
  4. LANSOPRAZOLE [Concomitant]
     Indication: DYSPEPSIA
     Dosage: 15 MG, 1X/DAY
     Route: 048
  5. PROCYCLIDINE [Concomitant]
     Dosage: 10 MG, 1X/DAY
     Route: 048
  6. SULPIRIDE [Concomitant]
     Indication: SCHIZOPHRENIA
     Dosage: 200 MG, 8X/DAY
     Route: 048

REACTIONS (4)
  - Overdose [Recovered/Resolved]
  - Psychotic disorder [Recovered/Resolved]
  - Stress [Recovered/Resolved]
  - Anxiety [Recovered/Resolved]
